FAERS Safety Report 7283818-X (Version None)
Quarter: 2011Q1

REPORT INFORMATION
  Report Type: 
  Country: None (occurrence: None)
  Receive Date: 20110209
  Receipt Date: 20110207
  Transmission Date: 20110831
  Serious: Yes (Other)
  Sender: FDA-Public Use
  Company Number: US-PFIZER INC-2011027492

PATIENT
  Sex: Female
  Weight: 61.22 kg

DRUGS (7)
  1. LYRICA [Suspect]
     Indication: NEUROPATHY PERIPHERAL
     Dosage: 75 MG, 2X/DAY
     Route: 048
     Dates: start: 20091101
  2. LYRICA [Suspect]
     Indication: FIBROMYALGIA
  3. LEXAPRO [Concomitant]
     Indication: INSOMNIA
     Dosage: UNK
  4. XANAX [Concomitant]
     Indication: INSOMNIA
     Dosage: UNK
  5. IMITREX [Concomitant]
     Dosage: UNK, AS NEEDED
  6. DIAZEPAM [Concomitant]
     Indication: INSOMNIA
     Dosage: UNK
  7. KEPPRA [Concomitant]
     Indication: CONVULSION
     Dosage: UNK

REACTIONS (6)
  - JOINT SWELLING [None]
  - CHOLELITHIASIS [None]
  - FALL [None]
  - RASH ERYTHEMATOUS [None]
  - DIZZINESS [None]
  - ALOPECIA [None]
